FAERS Safety Report 8065300-5 (Version None)
Quarter: 2011Q4

REPORT INFORMATION
  Report Type: 
  Country: None (occurrence: None)
  Receive Date: 20111221
  Receipt Date: 20110725
  Transmission Date: 20120403
  Serious: Yes (Other)
  Sender: FDA-Public Use
  Company Number: PHHY2011US56883

PATIENT
  Age: 83 Year
  Sex: Male

DRUGS (7)
  1. EXJADE [Suspect]
     Indication: MINERAL METABOLISM DISORDER
     Dosage: 1500 MG, DAILY, ORAL
     Route: 048
     Dates: start: 20110502, end: 20110531
  2. ONDANSETRON [Concomitant]
  3. HYDROCODONE BITARTRATE [Concomitant]
  4. COLACE (DOCUSATE SODIUM) [Concomitant]
  5. OMEPRAZOLE [Concomitant]
  6. FLOMAX [Concomitant]
  7. GABAPENTIN [Concomitant]

REACTIONS (4)
  - NEOPLASM PROGRESSION [None]
  - BLOOD CREATININE INCREASED [None]
  - METASTASES TO BONE [None]
  - NEOPLASM MALIGNANT [None]
